FAERS Safety Report 13563504 (Version 1)
Quarter: 2017Q2

REPORT INFORMATION
  Report Type: Spontaneous
  Country: FR (occurrence: FR)
  Receive Date: 20170519
  Receipt Date: 20170519
  Transmission Date: 20170830
  Serious: Yes (Hospitalization, Other)
  Sender: FDA-Public Use
  Company Number: FR-ABBVIE-17P-056-1973465-00

PATIENT
  Age: 6 Year
  Sex: Female

DRUGS (1)
  1. ULTANE [Suspect]
     Active Substance: SEVOFLURANE
     Indication: ANAESTHESIA
     Route: 055
     Dates: start: 20170207, end: 20170207

REACTIONS (3)
  - Laryngospasm [Recovered/Resolved]
  - Toxicity to various agents [Unknown]
  - Infection [Unknown]

NARRATIVE: CASE EVENT DATE: 20170207
